FAERS Safety Report 23086069 (Version 1)
Quarter: 2023Q4

REPORT INFORMATION
  Report Type: Report from Study
  Country: US (occurrence: US)
  Receive Date: 20231019
  Receipt Date: 20231019
  Transmission Date: 20240110
  Serious: Yes (Hospitalization)
  Sender: FDA-Public Use
  Company Number: US-Eisai-EC-2023-150627

PATIENT
  Age: 67 Year
  Sex: Female

DRUGS (2)
  1. LENVATINIB [Suspect]
     Active Substance: LENVATINIB
     Indication: Ductal adenocarcinoma of pancreas
     Dosage: UNKNOWN DOSAGE
     Route: 048
     Dates: end: 20231008
  2. PEMBROLIZUMAB [Suspect]
     Active Substance: PEMBROLIZUMAB
     Indication: Ductal adenocarcinoma of pancreas
     Dosage: UNKNOWN DOSE
     Route: 042
     Dates: end: 20230926

REACTIONS (2)
  - Immune-mediated endocrinopathy [Unknown]
  - Hypotension [Unknown]

NARRATIVE: CASE EVENT DATE: 20231010
